FAERS Safety Report 5290617-7 (Version None)
Quarter: 2007Q2

REPORT INFORMATION
  Report Type: 
  Country: None (occurrence: None)
  Receive Date: 20070405
  Receipt Date: 20070405
  Transmission Date: 20071010
  Serious: Yes (Hospitalization)
  Sender: FDA-Public Use
  Company Number: None

PATIENT
  Age: 63 Year
  Sex: Female

DRUGS (9)
  1. WARFARIN SODIUM [Suspect]
     Indication: ATRIAL FIBRILLATION
     Dosage: 30MG PO QWK 2.5MG M/F, 5MG QD ON OTHER DAYS
     Route: 048
  2. ASPIRIN [Concomitant]
  3. LISINOPRIL [Concomitant]
  4. LANTUS [Concomitant]
  5. IMDUR [Concomitant]
  6. DULCOLAX [Concomitant]
  7. COLACE [Concomitant]
  8. CALCITRIOL [Concomitant]
  9. AMIODARONE HCL [Concomitant]

REACTIONS (1)
  - INTERNATIONAL NORMALISED RATIO INCREASED [None]
